FAERS Safety Report 20368021 (Version 1)
Quarter: 2022Q1

REPORT INFORMATION
  Report Type: Spontaneous
  Country: FR (occurrence: FR)
  Receive Date: 20220124
  Receipt Date: 20220124
  Transmission Date: 20220423
  Serious: Yes (Life-Threatening, Hospitalization, Other)
  Sender: FDA-Public Use
  Company Number: FR-ALKEM LABORATORIES LIMITED-FR-ALKEM-2022-00284

PATIENT
  Age: 48 Year
  Sex: Male

DRUGS (5)
  1. DABIGATRAN ETEXILATE MESYLATE [Suspect]
     Active Substance: DABIGATRAN ETEXILATE MESYLATE
     Indication: Atrial fibrillation
     Dosage: 4500 MILLIGRAM
     Route: 065
  2. AMLODIPINE BESYLATE [Suspect]
     Active Substance: AMLODIPINE BESYLATE
  3. INSULIN NOS [Suspect]
     Active Substance: INSULIN NOS
  4. TRAMADOL [Suspect]
     Active Substance: TRAMADOL
  5. PERINDOPRIL [Suspect]
     Active Substance: PERINDOPRIL

REACTIONS (4)
  - Suicide attempt [Unknown]
  - Hypoglycaemia [Unknown]
  - Overdose [Unknown]
  - Hypotension [Unknown]
